FAERS Safety Report 5840899-5 (Version None)
Quarter: 2008Q3

REPORT INFORMATION
  Report Type: 
  Country: None (occurrence: None)
  Receive Date: 20080730
  Receipt Date: 20080428
  Transmission Date: 20090109
  Serious: Yes (Hospitalization)
  Sender: FDA-Public Use
  Company Number: PHEH2008US03791

PATIENT
  Age: 56 Year
  Sex: Male
  Weight: 89.3 kg

DRUGS (6)
  1. TEKTURNA [Suspect]
     Indication: HYPERTENSION
     Dosage: 300 MG, QD, ORAL
     Route: 048
     Dates: start: 20070904, end: 20080415
  2. EZETIMIBE W/SIMVASTATINE (EZETIMIBE, SIMVASTATIN) [Suspect]
     Indication: HYPERCHOLESTEROLAEMIA
     Dosage: 10/40 MG, QD, ORAL
     Route: 048
     Dates: start: 20070704, end: 20080415
  3. AVALIDE [Concomitant]
  4. CLONIDINE [Concomitant]
  5. BYSTOLIC (NEBIVOLOL HYDROCHLORIDE) [Concomitant]
  6. METFORMIN HCL [Concomitant]

REACTIONS (2)
  - OEDEMA PERIPHERAL [None]
  - RASH GENERALISED [None]
